FAERS Safety Report 8888577 (Version 2)
Quarter: 2013Q1

REPORT INFORMATION
  Report Type: Spontaneous
  Country: JP (occurrence: JP)
  Receive Date: 20121106
  Receipt Date: 20130311
  Transmission Date: 20140127
  Serious: Yes (Other)
  Sender: FDA-Public Use
  Company Number: JP-ROCHE-1152547

PATIENT
  Age: 12 Year
  Sex: Male
  Weight: 52 kg

DRUGS (7)
  1. PEGASYS [Suspect]
     Indication: CHRONIC HEPATITIS C
     Route: 058
     Dates: start: 20080730, end: 20090722
  2. EXCEGRAN [Concomitant]
     Indication: EPILEPSY
     Route: 048
     Dates: end: 200810
  3. LOXONIN [Concomitant]
     Indication: PYREXIA
     Dosage: 60MG-180MG/A DOSE ON THE FIRST
     Route: 048
     Dates: start: 20080730, end: 20080801
  4. MIYA-BM [Concomitant]
     Indication: ABDOMINAL PAIN
     Route: 048
     Dates: start: 20080801, end: 20080804
  5. GASTER D [Concomitant]
     Indication: ABDOMINAL PAIN
     Route: 048
     Dates: start: 20080802, end: 20080808
  6. POLARAMINE [Concomitant]
     Indication: RHINITIS ALLERGIC
     Route: 048
     Dates: start: 20081024, end: 20081122
  7. RIZABEN [Concomitant]
     Indication: RHINITIS ALLERGIC
     Dosage: THE FIRST 300MG-200MG/
     Route: 048
     Dates: start: 20090106, end: 200905

REACTIONS (4)
  - Failure to thrive [Recovering/Resolving]
  - Pyrexia [Recovered/Resolved]
  - Abdominal pain [Recovered/Resolved]
  - Decreased appetite [Unknown]
